FAERS Safety Report 5235256-9 (Version None)
Quarter: 2007Q1

REPORT INFORMATION
  Report Type: 
  Country: None (occurrence: None)
  Receive Date: 20070212
  Receipt Date: 20070201
  Transmission Date: 20070707
  Serious: Yes (Other)
  Sender: FDA-Public Use
  Company Number: NO-ELI_LILLY_AND_COMPANY-NO200702000285

PATIENT
  Age: 64 Year
  Sex: Female

DRUGS (6)
  1. ZYPREXA [Suspect]
     Indication: RESTLESSNESS
     Dosage: 10 MG, DAILY (1/D)
     Dates: start: 20070107, end: 20070115
  2. LACTULOSE [Concomitant]
     Indication: CONSTIPATION
     Dosage: 15 ML, DAILY (1/D)
  3. ALOPAM [Concomitant]
     Indication: RESTLESSNESS
     Dosage: 60 MG, DAILY (1/D)
  4. ZOLPIDEM TARTRATE [Concomitant]
     Indication: INSOMNIA
     Dosage: 10 MG, DAILY (1/D)
  5. VALLERGAN [Concomitant]
     Indication: INSOMNIA
     Dosage: 10 MG, DAILY (1/D)
  6. REMERON /THA/ [Concomitant]
     Indication: DEPRESSION
     Dosage: 30 MG, DAILY (1/D)

REACTIONS (1)
  - PULMONARY EMBOLISM [None]
